FAERS Safety Report 18368725 (Version 1)
Quarter: 2020Q4

REPORT INFORMATION
  Report Type: Spontaneous
  Country: FI (occurrence: FI)
  Receive Date: 20201010
  Receipt Date: 20201010
  Transmission Date: 20210114
  Serious: Yes (Hospitalization, Other)
  Sender: FDA-Public Use
  Company Number: FI-LUPIN PHARMACEUTICALS INC.-2020-06990

PATIENT
  Age: 30 Day
  Sex: Female

DRUGS (5)
  1. RIFAMPIN. [Suspect]
     Active Substance: RIFAMPIN
     Dosage: UNK (RESTARTED; CONTINUED FOR A TOTAL OF 9 MONTHS)
     Route: 065
  2. RIFAMPIN. [Suspect]
     Active Substance: RIFAMPIN
     Indication: CONGENITAL TUBERCULOSIS
     Dosage: UNK
     Route: 065
  3. ETHAMBUTOL [Concomitant]
     Active Substance: ETHAMBUTOL HYDROCHLORIDE
     Indication: CONGENITAL TUBERCULOSIS
     Dosage: UNK (THERAPY STOPPED AFTER 6 WEEKS OF TREATMENT)
     Route: 065
  4. PYRAZINAMIDE. [Concomitant]
     Active Substance: PYRAZINAMIDE
     Indication: CONGENITAL TUBERCULOSIS
     Dosage: UNK (THERAPY STOPPED AFTER 8 WEEKS OF TREATMENT)
     Route: 065
  5. ISONIAZID. [Concomitant]
     Active Substance: ISONIAZID
     Indication: CONGENITAL TUBERCULOSIS
     Dosage: UNK (CONTINUED FOR A TOTAL OF 9 MONTHS)
     Route: 065

REACTIONS (3)
  - Pyrexia [Recovered/Resolved]
  - Hepatic enzyme increased [Recovering/Resolving]
  - Pancytopenia [Recovering/Resolving]
